FAERS Safety Report 26192165 (Version 1)
Quarter: 2025Q4

REPORT INFORMATION
  Report Type: Spontaneous
  Country: US (occurrence: None)
  Receive Date: 20251223
  Receipt Date: 20251223
  Transmission Date: 20260118
  Serious: Yes (unspecified)
  Sender: FDA-CTU
  Company Number: None

PATIENT
  Age: 68 Year
  Sex: Female

DRUGS (1)
  1. LEQVIO [Suspect]
     Active Substance: INCLISIRAN SODIUM
     Dosage: OTHER FREQUENCY : EVERY 6 MONTHS;
     Route: 058
     Dates: start: 20250612, end: 20251211

REACTIONS (7)
  - Arthralgia [None]
  - Myalgia [None]
  - Pelvic pain [None]
  - Injection site pain [None]
  - Gait disturbance [None]
  - Urticaria [None]
  - Injection site erythema [None]

NARRATIVE: CASE EVENT DATE: 20251211
